FAERS Safety Report 5206052-3 (Version None)
Quarter: 2007Q1

REPORT INFORMATION
  Report Type: 
  Country: None (occurrence: None)
  Receive Date: 20070105
  Receipt Date: 20070105
  Transmission Date: 20070707
  Serious: Yes (Life-Threatening, Hospitalization)
  Sender: FDA-Public Use
  Company Number: None

PATIENT
  Age: 56 Year
  Sex: Female
  Weight: 73.7 kg

DRUGS (6)
  1. DILANTIN [Suspect]
     Indication: CONVULSION
     Dosage: 50MG Q12H, PO
     Route: 048
     Dates: start: 20060726
  2. WARFARIN SODIUM [Concomitant]
  3. TOPIRAMATE [Concomitant]
  4. PHENOBARBITAL TAB [Concomitant]
  5. PHENYTOIN SODIUM CAP [Concomitant]
  6. PREVACID [Concomitant]

REACTIONS (5)
  - COORDINATION ABNORMAL [None]
  - DRUG LEVEL INCREASED [None]
  - NYSTAGMUS [None]
  - TREMOR [None]
  - VISION BLURRED [None]
